FAERS Safety Report 8873614 (Version 1)
Quarter: 2012Q4

REPORT INFORMATION
  Report Type: 
  Country: US (occurrence: US)
  Receive Date: 20121026
  Receipt Date: 20121026
  Transmission Date: 20130627
  Serious: No
  Sender: FDA-Public Use
  Company Number: US-AMGEN-USASP2012045734

PATIENT
  Sex: Male

DRUGS (8)
  1. ENBREL [Suspect]
     Indication: PSORIASIS
     Dosage: 50 mg, qwk
     Route: 058
  2. COREG [Concomitant]
     Dosage: 25 mg, UNK
  3. NORVASC [Concomitant]
     Dosage: 5 mg, UNK
  4. LIPITOR [Concomitant]
     Dosage: 10 mg, UNK
  5. TEKTURNA [Concomitant]
     Dosage: 300 mg, UNK
  6. PROZAC [Concomitant]
     Dosage: 20 mg, UNK
  7. MICARDIS [Concomitant]
     Dosage: 80 mg, UNK
  8. RISPERDAL [Concomitant]
     Dosage: 0.5 mg, UNK

REACTIONS (1)
  - Drug ineffective [Unknown]
